FAERS Safety Report 9212341 (Version 1)
Quarter: 2013Q2

REPORT INFORMATION
  Report Type: Spontaneous
  Country: HU (occurrence: HU)
  Receive Date: 20130404
  Receipt Date: 20130404
  Transmission Date: 20140414
  Serious: Yes (Hospitalization)
  Sender: FDA-Public Use
  Company Number: HU-AMGEN-HUNSP2013023526

PATIENT
  Age: 63 Year
  Sex: Male

DRUGS (1)
  1. VECTIBIX [Suspect]
     Indication: NEOPLASM MALIGNANT
     Dosage: 462 MG, UNK
     Dates: start: 20120905

REACTIONS (8)
  - Blister [Recovering/Resolving]
  - Acne [Recovering/Resolving]
  - Decreased appetite [Recovered/Resolved]
  - Rash maculo-papular [Recovering/Resolving]
  - Erythema [Recovering/Resolving]
  - Fatigue [Recovered/Resolved]
  - Pruritus [Recovering/Resolving]
  - Rash pustular [Recovering/Resolving]
